FAERS Safety Report 19089222 (Version 2)
Quarter: 2021Q2

REPORT INFORMATION
  Report Type: Spontaneous
  Country: FR (occurrence: FR)
  Receive Date: 20210403
  Receipt Date: 20210409
  Transmission Date: 20210717
  Serious: Yes (Life-Threatening, Hospitalization, Other)
  Sender: FDA-Public Use
  Company Number: FR-AUROBINDO-AUR-APL-2021-013807

PATIENT
  Age: 28 Year
  Sex: Female
  Weight: 51 kg

DRUGS (8)
  1. LIDOCAINE. [Suspect]
     Active Substance: LIDOCAINE
     Indication: ANAESTHESIA
     Dosage: UNK
     Route: 065
     Dates: start: 20210217, end: 20210217
  2. SPASFON [PHLOROGLUCINOL] [Suspect]
     Active Substance: PHLOROGLUCINOL
     Indication: ABDOMINAL PAIN
     Dosage: 80 MILLIGRAM, 1 TOTAL
     Route: 065
     Dates: start: 20210217, end: 20210217
  3. SUFENTANIL [Suspect]
     Active Substance: SUFENTANIL
     Indication: GENERAL ANAESTHESIA
     Dosage: UNK
     Route: 042
     Dates: start: 20210217, end: 20210217
  4. DEXAMETHASONE. [Suspect]
     Active Substance: DEXAMETHASONE
     Indication: PROPHYLAXIS OF NAUSEA AND VOMITING
     Dosage: UNK
     Route: 048
     Dates: start: 20210217, end: 20210217
  5. ONDANSETRON RENAUDIN [Suspect]
     Active Substance: ONDANSETRON HYDROCHLORIDE
     Indication: PROPHYLAXIS OF NAUSEA AND VOMITING
     Dosage: 4 MILLIGRAM, 1 TOTAL
     Route: 042
     Dates: start: 20210217, end: 20210217
  6. DIPRIVAN [Suspect]
     Active Substance: PROPOFOL
     Indication: GENERAL ANAESTHESIA
     Dosage: UNK
     Route: 042
     Dates: start: 20210217, end: 20210217
  7. PARACETAMOL [Suspect]
     Active Substance: ACETAMINOPHEN
     Indication: PERIOPERATIVE ANALGESIA
     Dosage: UNK
     Route: 065
     Dates: start: 20210217, end: 20210217
  8. PROFENID [Suspect]
     Active Substance: KETOPROFEN
     Indication: PERIOPERATIVE ANALGESIA
     Dosage: UNK
     Route: 065
     Dates: start: 20210217, end: 20210217

REACTIONS (2)
  - Ventricular fibrillation [Recovered/Resolved]
  - Cardio-respiratory arrest [Recovered/Resolved]

NARRATIVE: CASE EVENT DATE: 20210217
